FAERS Safety Report 10012620 (Version 1)
Quarter: 2014Q1

REPORT INFORMATION
  Report Type: Spontaneous
  Country: US (occurrence: US)
  Receive Date: 20140314
  Receipt Date: 20140314
  Transmission Date: 20141002
  Serious: No
  Sender: FDA-Public Use
  Company Number: US-009507513-1402USA013668

PATIENT
  Sex: Female

DRUGS (1)
  1. TINACTIN SPRAY POWDER [Suspect]
     Indication: TINEA PEDIS
     Dosage: UNK, UNKNOWN
     Route: 061

REACTIONS (4)
  - Throat irritation [Recovering/Resolving]
  - Glossodynia [Recovering/Resolving]
  - Dyspepsia [Recovering/Resolving]
  - Accidental exposure to product [Unknown]
